FAERS Safety Report 5729627-1 (Version None)
Quarter: 2008Q2

REPORT INFORMATION
  Report Type: 
  Country: None (occurrence: None)
  Receive Date: 20080501
  Receipt Date: 20080418
  Transmission Date: 20081010
  Serious: Yes (Other)
  Sender: FDA-Public Use
  Company Number: 163-21880-08041391

PATIENT
  Age: 61 Year
  Sex: Female

DRUGS (4)
  1. REVLIMID [Suspect]
     Indication: MULTIPLE MYELOMA
     Dosage: 10 MG, OD, ORAL; DAILY, ORAL; DAILY, ORAL
     Route: 048
     Dates: start: 20070919, end: 20071201
  2. REVLIMID [Suspect]
     Indication: MULTIPLE MYELOMA
     Dosage: 10 MG, OD, ORAL; DAILY, ORAL; DAILY, ORAL
     Route: 048
     Dates: start: 20071221, end: 20080101
  3. REVLIMID [Suspect]
     Indication: MULTIPLE MYELOMA
     Dosage: 10 MG, OD, ORAL; DAILY, ORAL; DAILY, ORAL
     Route: 048
     Dates: start: 20080107
  4. RESTORIL [Concomitant]

REACTIONS (1)
  - RETINAL HAEMORRHAGE [None]
